FAERS Safety Report 6588102-5 (Version None)
Quarter: 2010Q1

REPORT INFORMATION
  Report Type: 
  Country: None (occurrence: None)
  Receive Date: 20100218
  Receipt Date: 20100212
  Transmission Date: 20100710
  Serious: Yes (Other)
  Sender: FDA-Public Use
  Company Number: PHEH2008US11775

PATIENT
  Sex: Female
  Weight: 134 kg

DRUGS (6)
  1. FEMARA [Suspect]
     Indication: BREAST CANCER
     Dosage: 2.5 MG, QD
     Route: 048
     Dates: start: 20080719, end: 20081008
  2. EFFEXOR [Concomitant]
     Indication: HOT FLUSH
     Dosage: UNK
  3. CALAN - SLOW RELEASE [Concomitant]
     Indication: BLOOD PRESSURE
  4. CALCIUM W/VITAMIN D NOS [Concomitant]
  5. FISH OIL [Concomitant]
  6. AMBIEN [Concomitant]
     Indication: SLEEP DISORDER

REACTIONS (8)
  - ARTHRALGIA [None]
  - ARTHRITIS [None]
  - MOVEMENT DISORDER [None]
  - MYALGIA [None]
  - OEDEMA PERIPHERAL [None]
  - PAIN IN EXTREMITY [None]
  - TENDON SHEATH INCISION [None]
  - TRIGGER FINGER [None]
